FAERS Safety Report 13376715 (Version 1)
Quarter: 2017Q1

REPORT INFORMATION
  Report Type: Spontaneous
  Country: US (occurrence: US)
  Receive Date: 20170327
  Receipt Date: 20170327
  Transmission Date: 20170429
  Serious: Yes (Other)
  Sender: FDA-Public Use
  Company Number: None

PATIENT
  Age: 32 Year
  Sex: Female
  Weight: 42.3 kg

DRUGS (6)
  1. SINGULAIR [Concomitant]
     Active Substance: MONTELUKAST SODIUM
  2. PREDNISONE 10 MG TABLET [Suspect]
     Active Substance: PREDNISONE
     Indication: UPPER-AIRWAY COUGH SYNDROME
     Dosage: ?          QUANTITY:1 TABLET(S);?
     Route: 048
     Dates: start: 20170327, end: 20170327
  3. QVAR [Concomitant]
     Active Substance: BECLOMETHASONE DIPROPIONATE
  4. ALBUTEROL. [Concomitant]
     Active Substance: ALBUTEROL
  5. PREDNISONE 10 MG TABLET [Suspect]
     Active Substance: PREDNISONE
     Indication: LARYNGITIS
     Dosage: ?          QUANTITY:1 TABLET(S);?
     Route: 048
     Dates: start: 20170327, end: 20170327
  6. CRANBERRY PILL [Concomitant]
     Active Substance: CRANBERRY

REACTIONS (5)
  - Diarrhoea [None]
  - Anal incontinence [None]
  - Dizziness [None]
  - Abdominal discomfort [None]
  - Flushing [None]

NARRATIVE: CASE EVENT DATE: 20170327
